FAERS Safety Report 24222402 (Version 3)
Quarter: 2024Q4

REPORT INFORMATION
  Report Type: Report from Study
  Country: US (occurrence: US)
  Receive Date: 20240819
  Receipt Date: 20241015
  Transmission Date: 20250115
  Serious: Yes (Other)
  Sender: PFIZER
  Company Number: US-PFIZER INC-202400237836

PATIENT
  Age: 35 Year
  Sex: Female

DRUGS (3)
  1. TUKYSA [Suspect]
     Active Substance: TUCATINIB
     Dosage: 150MG, TAKE 2 TABLETS EVERY 12 HOURS
     Route: 048
     Dates: start: 20240725
  2. TUKYSA [Suspect]
     Active Substance: TUCATINIB
     Dosage: 300MG BY MOUTH EVERY 12 HOURS
     Route: 048
  3. CAPECITABINE [Suspect]
     Active Substance: CAPECITABINE
     Dosage: UNK

REACTIONS (14)
  - Gastrointestinal haemorrhage [Not Recovered/Not Resolved]
  - Lumbar puncture [Not Recovered/Not Resolved]
  - Vertigo [Not Recovered/Not Resolved]
  - Dizziness [Recovered/Resolved]
  - Diarrhoea [Not Recovered/Not Resolved]
  - Constipation [Not Recovered/Not Resolved]
  - Headache [Not Recovered/Not Resolved]
  - Tremor [Unknown]
  - Muscle twitching [Unknown]
  - Dizziness [Not Recovered/Not Resolved]
  - Central nervous system lesion [Not Recovered/Not Resolved]
  - Hypoaesthesia [Not Recovered/Not Resolved]
  - Gastrointestinal disorder [Unknown]
  - Product dose omission issue [Unknown]

NARRATIVE: CASE EVENT DATE: 20240101
